FAERS Safety Report 24988871 (Version 1)
Quarter: 2025Q1

REPORT INFORMATION
  Report Type: Spontaneous
  Country: US (occurrence: US)
  Receive Date: 20250220
  Receipt Date: 20250220
  Transmission Date: 20250409
  Serious: No
  Sender: DR REDDYS
  Company Number: US-DRL-USA-USA/2025/02/002276

PATIENT
  Sex: Female

DRUGS (1)
  1. ACCUTANE [Suspect]
     Active Substance: ISOTRETINOIN
     Indication: Product used for unknown indication
     Dosage: 5 YEARS AGO, 80 MG EVERY DAY FOR A YEAR.?BOX OF30 (3 PACKS OF 10 CAPSULES)

REACTIONS (1)
  - Dry skin [Unknown]
